FAERS Safety Report 12113808 (Version 1)
Quarter: 2016Q1

REPORT INFORMATION
  Report Type: Spontaneous
  Country: US (occurrence: None)
  Receive Date: 20160223
  Receipt Date: 20160223
  Transmission Date: 20160526
  Serious: Yes (Other)
  Sender: FDA-Public Use
  Company Number: None

PATIENT
  Age: 80 Year
  Sex: Female
  Weight: 55.34 kg

DRUGS (5)
  1. QUINAPRIL-HCLTHZ [Concomitant]
  2. PRAVASTATIN [Concomitant]
     Active Substance: PRAVASTATIN\PRAVASTATIN SODIUM
  3. ASPIRIN. [Concomitant]
     Active Substance: ASPIRIN
  4. WAL TUSSIN DM ADULT COUGH AND CHEST CONGESTION [Suspect]
     Active Substance: DEXTROMETHORPHAN HYDROBROMIDE\GUAIFENESIN
     Indication: COUGH
     Dosage: NON PRESC 10 ML Q 2HR TAKEN BY MOUTH
     Route: 048
     Dates: start: 20160212, end: 20160218
  5. OXY BUTUNIN [Concomitant]

REACTIONS (1)
  - Gout [None]

NARRATIVE: CASE EVENT DATE: 20160218
